FAERS Safety Report 16121728 (Version 1)
Quarter: 2019Q2

REPORT INFORMATION
  Report Type: Spontaneous
  Country: US (occurrence: US)
  Receive Date: 20190326
  Receipt Date: 20190326
  Transmission Date: 20190711
  Serious: Yes (Disabling)
  Sender: FDA-Public Use
  Company Number: None

PATIENT
  Age: 47 Year
  Sex: Female
  Weight: 65.25 kg

DRUGS (1)
  1. CIPROFLOXACIN. [Suspect]
     Active Substance: CIPROFLOXACIN
     Indication: SKIN INFECTION
     Route: 048
     Dates: start: 20190105, end: 20190115

REACTIONS (3)
  - Nausea [None]
  - Vomiting [None]
  - Myalgia [None]

NARRATIVE: CASE EVENT DATE: 20190118
